FAERS Safety Report 5549333-6 (Version None)
Quarter: 2007Q4

REPORT INFORMATION
  Report Type: 
  Country: None (occurrence: None)
  Receive Date: 20071212
  Receipt Date: 20071126
  Transmission Date: 20080405
  Serious: Yes (Hospitalization, Other)
  Sender: FDA-Public Use
  Company Number: DE-BAYER-DE-2007-038913

PATIENT
  Age: 33 Year
  Sex: Female
  Weight: 70 kg

DRUGS (2)
  1. MIRENA [Suspect]
     Indication: POSTPARTUM HAEMORRHAGE
     Dosage: TOTAL DAILY DOSE: 20 ?G/D  UNIT DOSE: 20 ?G/D
     Route: 015
     Dates: start: 20010928, end: 20070705
  2. L-THYROXINE [Concomitant]
     Indication: THYROID OPERATION

REACTIONS (2)
  - AMENORRHOEA [None]
  - BREAST CANCER FEMALE [None]
